FAERS Safety Report 25645479 (Version 1)
Quarter: 2025Q3

REPORT INFORMATION
  Report Type: Spontaneous
  Country: US (occurrence: US)
  Receive Date: 20250805
  Receipt Date: 20250805
  Transmission Date: 20251021
  Serious: Yes (Other)
  Sender: BAYER HEALTHCARE PHARMACEUTICALS INC.
  Company Number: US-BAYER-2025A100802

PATIENT
  Sex: Male

DRUGS (1)
  1. NUBEQA [Suspect]
     Active Substance: DAROLUTAMIDE

REACTIONS (3)
  - Prostatectomy [Recovered/Resolved]
  - Tinnitus [Not Recovered/Not Resolved]
  - Drug intolerance [None]

NARRATIVE: CASE EVENT DATE: 20250101
